FAERS Safety Report 10076014 (Version 1)
Quarter: 2014Q2

REPORT INFORMATION
  Report Type: Spontaneous
  Country: GB (occurrence: GB)
  Receive Date: 20140414
  Receipt Date: 20140414
  Transmission Date: 20141212
  Serious: Yes (Hospitalization, Other)
  Sender: FDA-Public Use
  Company Number: GB-ASTRAZENECA-2014SE23412

PATIENT
  Age: 75 Year
  Sex: Female
  Weight: 52 kg

DRUGS (6)
  1. ROSUVASTATIN [Suspect]
     Route: 048
  2. ADCAL-D3 [Concomitant]
  3. ASPIRIN [Concomitant]
  4. BETAHISTINE [Concomitant]
  5. BISOPROLOL [Concomitant]
  6. OMACOR [Concomitant]

REACTIONS (2)
  - Muscle spasms [Not Recovered/Not Resolved]
  - Hypoaesthesia [Not Recovered/Not Resolved]
